FAERS Safety Report 17117782 (Version 1)
Quarter: 2019Q4

REPORT INFORMATION
  Report Type: Spontaneous
  Country: US (occurrence: US)
  Receive Date: 20191205
  Receipt Date: 20191205
  Transmission Date: 20200122
  Serious: No
  Sender: FDA-Public Use
  Company Number: US-ELI_LILLY_AND_COMPANY-US201911010033

PATIENT
  Age: 12 Year
  Sex: Female

DRUGS (1)
  1. HUMATROPE [Suspect]
     Active Substance: SOMATROPIN
     Indication: PRODUCT USED FOR UNKNOWN INDICATION
     Dosage: 1.2 MG, UNKNOWN
     Route: 058
     Dates: start: 20191107

REACTIONS (4)
  - Injection site haemorrhage [Recovered/Resolved]
  - Pyrexia [Recovering/Resolving]
  - Injection site pain [Recovering/Resolving]
  - Incorrect route of product administration [Unknown]
